FAERS Safety Report 12396372 (Version 1)
Quarter: 2016Q2

REPORT INFORMATION
  Report Type: Spontaneous
  Country: US (occurrence: US)
  Receive Date: 20160524
  Receipt Date: 20160524
  Transmission Date: 20160815
  Serious: No
  Sender: FDA-Public Use
  Company Number: US-CIPLA LTD.-2016US05444

PATIENT

DRUGS (3)
  1. PREMARIN VAGINAL [Suspect]
     Active Substance: ESTROGENS, CONJUGATED
     Indication: HOT FLUSH
  2. PREMARIN VAGINAL [Suspect]
     Active Substance: ESTROGENS, CONJUGATED
     Indication: SEXUAL DYSFUNCTION
     Dosage: 1 G, TWICE WEEKELY
     Route: 067
     Dates: start: 20150323
  3. TOPIRAMATE. [Suspect]
     Active Substance: TOPIRAMATE
     Indication: MIGRAINE
     Dosage: 25 MG, AS DIRECTED
     Route: 048

REACTIONS (9)
  - Groin pain [Unknown]
  - Vision blurred [Unknown]
  - Headache [Unknown]
  - Fatigue [Unknown]
  - Abasia [Unknown]
  - Pain in extremity [Unknown]
  - Eye pain [Unknown]
  - Back pain [Unknown]
  - Vulvovaginal pain [Unknown]
